FAERS Safety Report 16753463 (Version 1)
Quarter: 2019Q3

REPORT INFORMATION
  Report Type: Spontaneous
  Country: CA (occurrence: CA)
  Receive Date: 20190829
  Receipt Date: 20190829
  Transmission Date: 20191005
  Serious: Yes (Other)
  Sender: FDA-Public Use
  Company Number: CA-TEVA-2019-CA-1097057

PATIENT
  Sex: Male

DRUGS (1)
  1. PREDNISONE. [Suspect]
     Active Substance: PREDNISONE
     Route: 065

REACTIONS (5)
  - Colitis ulcerative [Unknown]
  - Proctalgia [Unknown]
  - Mouth ulceration [Unknown]
  - Pain [Unknown]
  - Frequent bowel movements [Recovering/Resolving]
